FAERS Safety Report 8456036-7 (Version None)
Quarter: 2012Q2

REPORT INFORMATION
  Report Type: 
  Country: None (occurrence: None)
  Receive Date: 20120621
  Receipt Date: 20120614
  Transmission Date: 20120825
  Serious: Yes (Other)
  Sender: FDA-Public Use
  Company Number: PHHY2012BR051829

PATIENT
  Age: 47 Year
  Sex: Female

DRUGS (4)
  1. PROMETHAZINE [Concomitant]
     Indication: SLEEP DISORDER
     Dosage: 2 DF, DAILY
     Route: 048
  2. DIAZEPAM [Concomitant]
     Indication: SLEEP DISORDER
     Dosage: 1 DF, QD
     Route: 048
  3. BIPERIDEN HYDROCHLORIDE TAB [Concomitant]
     Indication: AKATHISIA
     Dosage: 2 DF, DAILY
     Route: 048
     Dates: start: 20070101
  4. CLOZAPINE [Suspect]
     Indication: SCHIZOPHRENIA, PARANOID TYPE
     Dosage: 5 DF, DAILY
     Route: 048
     Dates: start: 20091201

REACTIONS (1)
  - GASTROOESOPHAGEAL REFLUX DISEASE [None]
